FAERS Safety Report 6898359-9 (Version None)
Quarter: 2010Q3

REPORT INFORMATION
  Report Type: 
  Country: None (occurrence: None)
  Receive Date: 20100802
  Receipt Date: 20071017
  Transmission Date: 20110219
  Serious: Yes (Hospitalization, Other)
  Sender: FDA-Public Use
  Company Number: US-PFIZER INC-2007088143

PATIENT
  Sex: Female

DRUGS (2)
  1. LYRICA [Suspect]
     Indication: OSTEONECROSIS
     Route: 048
     Dates: start: 20070901
  2. CELEBREX [Suspect]
     Indication: OSTEONECROSIS
     Route: 048
     Dates: start: 20071001

REACTIONS (1)
  - OEDEMA [None]
